FAERS Safety Report 9844412 (Version 2)
Quarter: 2014Q1

REPORT INFORMATION
  Report Type: Spontaneous
  Country: BR (occurrence: BR)
  Receive Date: 20140127
  Receipt Date: 20140127
  Transmission Date: 20141002
  Serious: Yes (Hospitalization)
  Sender: FDA-Public Use
  Company Number: BR-ROCHE-1331368

PATIENT
  Sex: Female
  Weight: 70 kg

DRUGS (1)
  1. HERCEPTIN [Suspect]
     Indication: BREAST NEOPLASM
     Route: 042
     Dates: start: 201212, end: 201311

REACTIONS (1)
  - Dermatomyositis [Recovering/Resolving]
